FAERS Safety Report 10768812 (Version 1)
Quarter: 2015Q1

REPORT INFORMATION
  Report Type: Spontaneous
  Country: US (occurrence: None)
  Receive Date: 20150204
  Receipt Date: 20150204
  Transmission Date: 20150721
  Serious: Yes (Hospitalization)
  Sender: FDA-Public Use
  Company Number: FK201500433

PATIENT
  Age: 50 Year
  Sex: Female

DRUGS (2)
  1. FLUOROURACIL (FLUOROURACIL) [Suspect]
     Active Substance: FLUOROURACIL
     Indication: COLORECTAL CANCER
     Dosage: CYCLICAL
  2. MITOMYCIN (MITOMYCIN) (MITOMYCIN) [Suspect]
     Active Substance: MITOMYCIN
     Indication: COLORECTAL CANCER
     Dosage: CYCLICAL

REACTIONS (4)
  - Seizure [None]
  - Brain oedema [None]
  - Cerebral haemorrhage [None]
  - Posterior reversible encephalopathy syndrome [None]
